FAERS Safety Report 17704369 (Version 1)
Quarter: 2020Q2

REPORT INFORMATION
  Report Type: Spontaneous
  Country: GB (occurrence: GB)
  Receive Date: 20200424
  Receipt Date: 20200424
  Transmission Date: 20200714
  Serious: Yes (Hospitalization, Other)
  Sender: FDA-Public Use
  Company Number: GB-TEVA-2020-GB-1226064

PATIENT
  Age: 41 Year
  Sex: Female

DRUGS (6)
  1. LUTATHERA [Suspect]
     Active Substance: LUTETIUM OXODOTREOTIDE LU-177
     Indication: GASTROENTEROPANCREATIC NEUROENDOCRINE TUMOUR DISEASE
     Dosage: UNK
     Route: 065
     Dates: start: 201409
  2. LUTATHERA [Suspect]
     Active Substance: LUTETIUM OXODOTREOTIDE LU-177
     Dosage: UNK?THERAPY END DATE : ASKED BUT UNKNOWN
     Route: 065
     Dates: start: 201408
  3. OCTREOTIDE. [Suspect]
     Active Substance: OCTREOTIDE
     Indication: GASTROENTEROPANCREATIC NEUROENDOCRINE TUMOUR DISEASE
     Dosage: 30 MG, QW4, UNIT DOSE : 120 MG
     Route: 065
     Dates: start: 201011
  4. LUTATHERA [Suspect]
     Active Substance: LUTETIUM OXODOTREOTIDE LU-177
     Dosage: UNK?THERAPY END DATE : ASKED BUT UNKNOWN
     Route: 065
     Dates: start: 201411
  5. INTERFERON [Suspect]
     Active Substance: INTERFERON
     Indication: GASTROENTEROPANCREATIC NEUROENDOCRINE TUMOUR DISEASE
     Dosage: UNK, Q3W
     Route: 065
     Dates: start: 201105, end: 201402
  6. LUTATHERA [Suspect]
     Active Substance: LUTETIUM OXODOTREOTIDE LU-177
     Dosage: UNK?THERAPY END DATE : ASKED BUT UNKNOWN
     Route: 065
     Dates: start: 201406

REACTIONS (4)
  - Malignant neoplasm progression [Unknown]
  - Gastroenteropancreatic neuroendocrine tumour disease [Unknown]
  - Nausea [Unknown]
  - Vomiting [Unknown]
